FAERS Safety Report 22040818 (Version 2)
Quarter: 2023Q2

REPORT INFORMATION
  Report Type: Spontaneous
  Country: CA (occurrence: CA)
  Receive Date: 20230227
  Receipt Date: 20230417
  Transmission Date: 20230722
  Serious: Yes (Death)
  Sender: FDA-Public Use
  Company Number: CA-PFIZER INC-PV202300026297

PATIENT
  Age: 70 Year
  Sex: Male

DRUGS (2)
  1. OXALIPLATIN [Suspect]
     Active Substance: OXALIPLATIN
     Dosage: 1 DF, EVERY 2 WEEKS
     Dates: start: 20221109, end: 20230112
  2. FLUOROURACIL SODIUM [Suspect]
     Active Substance: FLUOROURACIL SODIUM
     Dosage: 1 DF, EVERY TWO WEEKS
     Dates: start: 20221109, end: 20230112

REACTIONS (2)
  - Assisted suicide [Fatal]
  - Neoplasm progression [Unknown]

NARRATIVE: CASE EVENT DATE: 20230217
